FAERS Safety Report 8231116 (Version 2)
Quarter: 2012Q4

REPORT INFORMATION
  Report Type: 
  Country: US (occurrence: US)
  Receive Date: 20111106
  Receipt Date: 20121107
  Transmission Date: 20130627
  Serious: No
  Sender: FDA-Public Use
  Company Number: US-AMGEN-USASP2011044413

PATIENT
  Age: 49 Year
  Sex: Female

DRUGS (3)
  1. ENBREL [Suspect]
     Indication: RHEUMATOID ARTHRITIS
     Dosage: 50 mg, qwk
     Dates: start: 20090501, end: 201110
  2. LEFLUNOMIDE [Concomitant]
     Dosage: 20 mg, qd
     Dates: start: 2009
  3. CIMZIA [Concomitant]

REACTIONS (8)
  - Bone erosion [Not Recovered/Not Resolved]
  - Alopecia [Not Recovered/Not Resolved]
  - Joint stiffness [Recovering/Resolving]
  - Arthralgia [Recovering/Resolving]
  - Musculoskeletal stiffness [Recovering/Resolving]
  - Joint swelling [Recovering/Resolving]
  - Pain in extremity [Recovering/Resolving]
  - Oedema peripheral [Recovering/Resolving]
